FAERS Safety Report 7727513-9 (Version None)
Quarter: 2011Q3

REPORT INFORMATION
  Report Type: 
  Country: None (occurrence: None)
  Receive Date: 20110902
  Receipt Date: 20110831
  Transmission Date: 20111222
  Serious: No
  Sender: FDA-Public Use
  Company Number: US-PFIZER INC-2011204630

PATIENT
  Sex: Male
  Weight: 83.9 kg

DRUGS (8)
  1. CETIRIZINE HYDROCHLORIDE [Concomitant]
     Indication: HYPERSENSITIVITY
     Dosage: 10 MG, DAILY
  2. FLUOCINONIDE [Concomitant]
     Indication: ECZEMA
     Dosage: UNK, 2X/DAY
  3. FLUTICASONE PROPIONATE [Concomitant]
     Indication: HYPERSENSITIVITY
     Dosage: UNK, 2 SPRAYS IN EACH NOSTRIL DAILY
  4. CHANTIX [Suspect]
     Indication: SMOKING CESSATION THERAPY
     Dosage: 0.5 MG, DAILY
     Route: 048
     Dates: start: 20110816, end: 20110801
  5. GENGRAF [Concomitant]
     Indication: ECZEMA
     Dosage: 100 MG, 2X/DAY
  6. SINGULAIR [Concomitant]
     Indication: HYPERSENSITIVITY
     Dosage: 10 MG, DAILY
  7. SUDAFED 12 HOUR [Concomitant]
     Indication: HYPERSENSITIVITY
     Dosage: 60 MG, DAILY
  8. CHANTIX [Suspect]
     Dosage: UNK
     Route: 048
     Dates: start: 20110801

REACTIONS (1)
  - SWOLLEN TONGUE [None]
